FAERS Safety Report 17756742 (Version 2)
Quarter: 2020Q3

REPORT INFORMATION
  Report Type: Spontaneous
  Country: NO (occurrence: NO)
  Receive Date: 20200507
  Receipt Date: 20200716
  Transmission Date: 20201102
  Serious: Yes (Life-Threatening)
  Sender: FDA-Public Use
  Company Number: NO-JNJFOC-20200500462

PATIENT
  Age: 75 Year
  Sex: Male
  Weight: 112 kg

DRUGS (13)
  1. METFORMIN [Concomitant]
     Active Substance: METFORMIN HYDROCHLORIDE
     Indication: TYPE 2 DIABETES MELLITUS
     Route: 048
  2. INSULATARD                         /00646002/ [Concomitant]
     Active Substance: INSULIN HUMAN
     Indication: TYPE 2 DIABETES MELLITUS
     Dosage: FLEX PEN?27 IE + 21 IE
     Route: 058
  3. NOVORAPID [Concomitant]
     Active Substance: INSULIN ASPART
     Indication: TYPE 2 DIABETES MELLITUS
     Dosage: ; AS REQUIRED
     Route: 058
  4. ALBYL?E [Concomitant]
     Active Substance: ASPIRIN\MAGNESIUM OXIDE
     Route: 048
  5. FRAGMIN [Concomitant]
     Active Substance: DALTEPARIN SODIUM
     Indication: THROMBOSIS PROPHYLAXIS
     Dosage: 1 SYRINGE EACH EVENING
     Route: 058
     Dates: start: 20200212
  6. SIMPONI [Suspect]
     Active Substance: GOLIMUMAB
     Indication: PSORIATIC ARTHROPATHY
     Dosage: USED SIMPONI IN MONOTHERAPY
     Route: 058
     Dates: start: 2011, end: 20200311
  7. SIMVASTATIN BLUEFISH [Concomitant]
     Active Substance: SIMVASTATIN
     Route: 048
  8. FLUTIDE [Concomitant]
     Active Substance: FLUTICASONE PROPIONATE
     Dosage: 1 DOSAGE IN EACH NOSTRIL 1?2 TIMES PER DAY
     Route: 045
  9. ENALAPRIL KRKA [Concomitant]
     Active Substance: ENALAPRIL MALEATE
     Indication: HYPERTENSION
     Dosage: 10 MG, 0.5 X 1
     Route: 048
  10. INCRUSE ELLIPTA [Concomitant]
     Active Substance: UMECLIDINIUM BROMIDE
     Dosage: UMECLIDINIUM: 55UG;
     Route: 055
  11. PARACETAMOL [Concomitant]
     Active Substance: ACETAMINOPHEN
     Dosage: 500 MG UP TO 3?4 TIMES PER DAY WHEN NEEDED DUE TO FEVER OR PAIN; AS REQUIRED
     Route: 048
  12. VESICARE [Concomitant]
     Active Substance: SOLIFENACIN SUCCINATE
     Route: 048
  13. VENTOLINE                          /00139501/ [Concomitant]
     Active Substance: ALBUTEROL
     Route: 055

REACTIONS (1)
  - Pancreatic carcinoma [Not Recovered/Not Resolved]

NARRATIVE: CASE EVENT DATE: 202002
